FAERS Safety Report 10991691 (Version 1)
Quarter: 2015Q2

REPORT INFORMATION
  Report Type: Spontaneous
  Country: US (occurrence: US)
  Receive Date: 20150406
  Receipt Date: 20150406
  Transmission Date: 20150821
  Serious: Yes (Other)
  Sender: FDA-Public Use
  Company Number: US-TAKEDA-2015TUS003952

PATIENT
  Sex: Male
  Weight: 80.73 kg

DRUGS (2)
  1. OSENI [Suspect]
     Active Substance: ALOGLIPTIN BENZOATE\PIOGLITAZONE HYDROCHLORIDE
     Indication: TYPE 2 DIABETES MELLITUS
     Dosage: 25/30
     Route: 048
     Dates: start: 2014
  2. ACTOS [Suspect]
     Active Substance: PIOGLITAZONE HYDROCHLORIDE
     Indication: TYPE 2 DIABETES MELLITUS
     Dosage: 15
     Route: 048
     Dates: start: 2011, end: 2014

REACTIONS (1)
  - Bladder transitional cell carcinoma stage II [Recovered/Resolved]

NARRATIVE: CASE EVENT DATE: 2015
